FAERS Safety Report 4972922-4 (Version None)
Quarter: 2006Q2

REPORT INFORMATION
  Report Type: 
  Country: None (occurrence: None)
  Receive Date: 20060414
  Receipt Date: 20060213
  Transmission Date: 20061013
  Serious: Yes (Other)
  Sender: FDA-Public Use
  Company Number: JP-AVENTIS-200610483JP

PATIENT
  Age: 56 Year
  Sex: Male
  Weight: 62 kg

DRUGS (9)
  1. ALLEGRA [Suspect]
     Indication: PRURITUS GENERALISED
     Route: 048
     Dates: start: 20051121, end: 20051213
  2. AMLODIN [Concomitant]
     Indication: HYPERTENSION
     Route: 048
  3. ACINON [Concomitant]
     Indication: PROPHYLAXIS
     Route: 048
  4. ACINON [Concomitant]
     Indication: ULCER
     Route: 048
  5. TENORMIN [Concomitant]
     Indication: TACHYCARDIA
     Route: 048
  6. CYANOCOBALAMIN [Concomitant]
     Indication: HYPOAESTHESIA
     Route: 048
  7. EURODIN [Concomitant]
     Indication: INSOMNIA
     Route: 048
  8. MAGNESIUM OXIDE [Concomitant]
     Indication: CONSTIPATION
     Route: 048
  9. SHINBUTO [Concomitant]
     Indication: HYPOAESTHESIA
     Route: 048

REACTIONS (6)
  - ASPARTATE AMINOTRANSFERASE INCREASED [None]
  - BLOOD ALKALINE PHOSPHATASE INCREASED [None]
  - BLOOD LACTATE DEHYDROGENASE INCREASED [None]
  - CHOLELITHIASIS [None]
  - GAMMA-GLUTAMYLTRANSFERASE INCREASED [None]
  - HEPATIC FUNCTION ABNORMAL [None]
